FAERS Safety Report 19716913 (Version 1)
Quarter: 2021Q3

REPORT INFORMATION
  Report Type: Spontaneous
  Country: US (occurrence: US)
  Receive Date: 20210818
  Receipt Date: 20210818
  Transmission Date: 20211014
  Serious: Yes (Life-Threatening)
  Sender: FDA-Public Use
  Company Number: US-LOREAL USA PRODUCTS, INC.-2021LOR00023

PATIENT
  Sex: Female

DRUGS (3)
  1. RENERGIE MULTI LIFT YEUX 2016 ? EU/USA [COSMETICS] [Suspect]
     Active Substance: COSMETICS
     Dosage: UNK
     Dates: start: 20210728, end: 20210801
  2. LANCOME PARIS RENERGIE LIFT MULTI ACTION ALL [Suspect]
     Active Substance: AVOBENZONE\OCTISALATE\OCTOCRYLENE
     Dosage: UNK
     Dates: start: 20210728, end: 20210801
  3. R?NERGIE R?NOVATION NUIT 2012 [Concomitant]
     Dosage: UNK
     Dates: start: 20210728, end: 20210801

REACTIONS (5)
  - Skin tightness [Recovered/Resolved]
  - Pharyngeal swelling [Recovered/Resolved]
  - Urticaria [Recovered/Resolved]
  - Scratch [Not Recovered/Not Resolved]
  - Application site warmth [Recovered/Resolved]

NARRATIVE: CASE EVENT DATE: 20210728
